FAERS Safety Report 4816241-5 (Version None)
Quarter: 2005Q4

REPORT INFORMATION
  Report Type: 
  Country: None (occurrence: None)
  Receive Date: 20051028
  Receipt Date: 20051019
  Transmission Date: 20060501
  Serious: Yes (Death)
  Sender: FDA-Public Use
  Company Number: 2005RR-00960

PATIENT
  Age: 48 Year
  Sex: Male

DRUGS (1)
  1. FLUOXETINE [Suspect]
     Indication: DEPRESSION
     Dosage: 20 MG, QD, ORAL
     Route: 048
     Dates: start: 20041215

REACTIONS (1)
  - COMPLETED SUICIDE [None]
